FAERS Safety Report 11398836 (Version 2)
Quarter: 2016Q2

REPORT INFORMATION
  Report Type: Report from Study
  Country: US (occurrence: US)
  Receive Date: 20150820
  Receipt Date: 20160415
  Transmission Date: 20160815
  Serious: Yes (Hospitalization, Other)
  Sender: FDA-Public Use
  Company Number: US-ABBVIE-15K-163-1444000-00

PATIENT
  Age: 61 Year
  Sex: Female
  Weight: 69.92 kg

DRUGS (7)
  1. PREDNISONE. [Suspect]
     Active Substance: PREDNISONE
     Indication: PRODUCT USED FOR UNKNOWN INDICATION
     Route: 065
  2. HUMIRA [Suspect]
     Active Substance: ADALIMUMAB
     Route: 058
     Dates: start: 2014
  3. HUMIRA [Suspect]
     Active Substance: ADALIMUMAB
     Indication: CROHN^S DISEASE
     Route: 058
     Dates: start: 201306, end: 201306
  4. HUMIRA [Suspect]
     Active Substance: ADALIMUMAB
     Route: 058
     Dates: start: 2013, end: 2014
  5. HUMIRA [Suspect]
     Active Substance: ADALIMUMAB
     Route: 058
     Dates: start: 201306, end: 201306
  6. XANAX [Concomitant]
     Active Substance: ALPRAZOLAM
     Indication: PRODUCT USED FOR UNKNOWN INDICATION
  7. FOLIC ACID. [Concomitant]
     Active Substance: FOLIC ACID
     Indication: PRODUCT USED FOR UNKNOWN INDICATION

REACTIONS (19)
  - Wheezing [Not Recovered/Not Resolved]
  - Nasopharyngitis [Not Recovered/Not Resolved]
  - Crohn^s disease [Recovered/Resolved]
  - Swelling [Not Recovered/Not Resolved]
  - Blood potassium decreased [Recovered/Resolved]
  - Tooth fracture [Recovered/Resolved]
  - Bronchitis [Recovered/Resolved]
  - Tooth fracture [Not Recovered/Not Resolved]
  - Tooth abscess [Unknown]
  - Incorrect dose administered [Not Recovered/Not Resolved]
  - Bone disorder [Unknown]
  - Pain in jaw [Not Recovered/Not Resolved]
  - Bronchitis [Recovered/Resolved]
  - Blood potassium decreased [Recovered/Resolved]
  - Feeling jittery [Not Recovered/Not Resolved]
  - Tooth loss [Not Recovered/Not Resolved]
  - Injection site pain [Recovered/Resolved]
  - Alopecia [Not Recovered/Not Resolved]
  - Device issue [Not Recovered/Not Resolved]

NARRATIVE: CASE EVENT DATE: 2014
